FAERS Safety Report 11997177 (Version 2)
Quarter: 2016Q2

REPORT INFORMATION
  Report Type: Report from Study
  Country: US (occurrence: US)
  Receive Date: 20160203
  Receipt Date: 20160605
  Transmission Date: 20160815
  Serious: Yes (Hospitalization)
  Sender: FDA-Public Use
  Company Number: US-AMGEN-USASL2016010098

PATIENT
  Age: 51 Year
  Sex: Female

DRUGS (2)
  1. ENBREL [Suspect]
     Active Substance: ETANERCEPT
     Indication: RHEUMATOID ARTHRITIS
     Dosage: 50 MG, WEEKLY
     Route: 065
     Dates: start: 201512
  2. METHOTREXATE [Concomitant]
     Active Substance: METHOTREXATE
     Dosage: UNK

REACTIONS (11)
  - Swelling [Recovering/Resolving]
  - Hyperhidrosis [Unknown]
  - Dehydration [Unknown]
  - Rash [Recovering/Resolving]
  - Kidney infection [Recovering/Resolving]
  - Myalgia [Unknown]
  - Headache [Unknown]
  - Retching [Unknown]
  - Malaise [Unknown]
  - Hot flush [Unknown]
  - Pyrexia [Unknown]

NARRATIVE: CASE EVENT DATE: 201601
